FAERS Safety Report 4333506-4 (Version None)
Quarter: 2004Q2

REPORT INFORMATION
  Report Type: 
  Country: None (occurrence: None)
  Receive Date: 20040401
  Receipt Date: 20040326
  Transmission Date: 20050107
  Serious: Yes (Hospitalization, Disabling)
  Sender: FDA-Public Use
  Company Number: 002#4#2004-00068

PATIENT
  Age: 59 Year
  Sex: Female

DRUGS (5)
  1. PPA/CPM-75/8MG (OTC) (PHENYLPROPANOLAMINE HCL,CHLOROPHENEAMINE, MALEAT [Suspect]
     Indication: NASOPHARYNGITIS
     Dosage: 1 IN 12 H, ORAL
     Route: 048
     Dates: start: 19971023, end: 19971030
  2. ISOSORBIDE [Concomitant]
  3. AMLODIPINE [Concomitant]
  4. ALKA-SELTZER-PLUS [Concomitant]
  5. ROBITUSSIN-CF [Concomitant]

REACTIONS (5)
  - CEREBRAL INFARCTION [None]
  - DIABETES MELLITUS [None]
  - ISCHAEMIC STROKE [None]
  - STRESS SYMPTOMS [None]
  - VENTRICULAR HYPERTROPHY [None]
